FAERS Safety Report 5614618-1 (Version None)
Quarter: 2008Q1

REPORT INFORMATION
  Report Type: 
  Country: None (occurrence: None)
  Receive Date: 20080131
  Receipt Date: 20080116
  Transmission Date: 20080703
  Serious: Yes (Other)
  Sender: FDA-Public Use
  Company Number: SPV1-2008-00088

PATIENT
  Age: 7 Year
  Sex: Male
  Weight: 22.7 kg

DRUGS (1)
  1. ADDERALL XR 30 [Suspect]
     Indication: ATTENTION DEFICIT/HYPERACTIVITY DISORDER
     Dosage: 15 MG, 1X/DAY:QD, ORAL
     Route: 048
     Dates: start: 20071001, end: 20071201

REACTIONS (2)
  - SELF ESTEEM DECREASED [None]
  - SUICIDAL IDEATION [None]
